FAERS Safety Report 23050948 (Version 1)
Quarter: 2023Q4

REPORT INFORMATION
  Report Type: Spontaneous
  Country: US (occurrence: US)
  Receive Date: 20231010
  Receipt Date: 20231010
  Transmission Date: 20240110
  Serious: No
  Sender: FDA-Public Use
  Company Number: US-SA-SAC20231005000437

PATIENT
  Age: 61 Year
  Sex: Male
  Weight: 92.98 kg

DRUGS (2)
  1. DUPIXENT [Suspect]
     Active Substance: DUPILUMAB
     Indication: Dermatitis atopic
     Dosage: INJECT 600 MG (2 PENS DIVIDED INTO TWO INJECTION SITES) UNDER THE SKIN ON DAY 1
     Route: 058
  2. DUPIXENT [Suspect]
     Active Substance: DUPILUMAB
     Dosage: INJECT 300 MG (1 PEN) EVERY 2 WEEKS THEREAFTER STARTING ON DAY 15
     Route: 058

REACTIONS (7)
  - Pain [Unknown]
  - Product dose omission issue [Unknown]
  - Scratch [Unknown]
  - Skin wound [Unknown]
  - Skin burning sensation [Unknown]
  - Pruritus [Unknown]
  - Eczema [Unknown]
